FAERS Safety Report 7070151-4 (Version None)
Quarter: 2010Q4

REPORT INFORMATION
  Report Type: 
  Country: None (occurrence: None)
  Receive Date: 20101028
  Receipt Date: 20100908
  Transmission Date: 20110411
  Serious: No
  Sender: FDA-Public Use
  Company Number: US-WYE-H17270410

PATIENT
  Sex: Female

DRUGS (2)
  1. PROTONIX [Suspect]
     Indication: DYSPEPSIA
     Dates: end: 20100101
  2. PROTONIX [Suspect]
     Dates: start: 20100101

REACTIONS (3)
  - DRUG INEFFECTIVE [None]
  - ULCER [None]
  - UNEVALUABLE EVENT [None]
